FAERS Safety Report 8303186-1 (Version None)
Quarter: 2012Q2

REPORT INFORMATION
  Report Type: 
  Country: None (occurrence: None)
  Receive Date: 20120423
  Receipt Date: 20120413
  Transmission Date: 20120825
  Serious: Yes (Hospitalization)
  Sender: FDA-Public Use
  Company Number: US-BIOGENIDEC-2012BI004905

PATIENT
  Age: 48 Year
  Sex: Female

DRUGS (1)
  1. TYSABRI [Suspect]
     Indication: MULTIPLE SCLEROSIS
     Route: 042
     Dates: start: 20100609, end: 20111129

REACTIONS (6)
  - MICTURITION URGENCY [None]
  - ASTHENIA [None]
  - NASOPHARYNGITIS [None]
  - DRUG INEFFECTIVE [None]
  - BLADDER DISORDER [None]
  - PYREXIA [None]
